FAERS Safety Report 14438703 (Version 1)
Quarter: 2018Q1

REPORT INFORMATION
  Report Type: Spontaneous
  Country: US (occurrence: US)
  Receive Date: 20180125
  Receipt Date: 20180125
  Transmission Date: 20180509
  Serious: No
  Sender: FDA-Public Use
  Company Number: US-UNITED THERAPEUTICS-UNT-2017-012871

PATIENT
  Age: 70 Year
  Sex: Male
  Weight: 72.56 kg

DRUGS (3)
  1. REMODULIN [Suspect]
     Active Substance: TREPROSTINIL
     Dosage: 0.005 ?G/KG, CONTINUING
     Route: 058
     Dates: start: 20170903
  2. REMODULIN [Suspect]
     Active Substance: TREPROSTINIL
     Indication: PULMONARY ARTERIAL HYPERTENSION
     Dosage: 0.002 ?G/KG, CONTINUING
     Route: 058
     Dates: start: 20170728
  3. REMODULIN [Suspect]
     Active Substance: TREPROSTINIL
     Dosage: 0.018 ?G/KG, CONTINUING
     Route: 058

REACTIONS (9)
  - Infusion site erythema [Unknown]
  - Nasopharyngitis [Unknown]
  - Infusion site swelling [Unknown]
  - Infusion site pain [Recovering/Resolving]
  - Dyspnoea [Recovered/Resolved]
  - Nausea [Recovering/Resolving]
  - Device dislocation [Unknown]
  - Dizziness [Recovered/Resolved]
  - Dyspnoea exertional [Recovering/Resolving]

NARRATIVE: CASE EVENT DATE: 2017
